FAERS Safety Report 20891983 (Version 1)
Quarter: 2022Q2

REPORT INFORMATION
  Report Type: Other
  Country: ES (occurrence: ES)
  Receive Date: 20220530
  Receipt Date: 20220530
  Transmission Date: 20220721
  Serious: Yes (Hospitalization)
  Sender: FDA-Public Use
  Company Number: ES-CELLTRION HEALTHCARE HUNGARY KFT-2022ES006641

PATIENT

DRUGS (6)
  1. RITUXIMAB [Suspect]
     Active Substance: RITUXIMAB
     Indication: Follicular lymphoma stage IV
     Dosage: 6 CYCLES OF CHEMOIMMUNOTHERAPY R-CHOP SCHEDULE UNTIL JULY 2020
     Route: 041
  2. RITUXIMAB [Suspect]
     Active Substance: RITUXIMAB
     Indication: Lymphoproliferative disorder
     Dosage: 375 MG/M2 IN MONOTHERAPY EVERY 2 MONTHS
     Route: 041
     Dates: start: 202010
  3. RITUXIMAB [Suspect]
     Active Substance: RITUXIMAB
     Dosage: 375 MG/M2 IN MONOTHERAPY EVERY 2 MONTHS
     Route: 041
     Dates: start: 20210726
  4. RITUXIMAB [Suspect]
     Active Substance: RITUXIMAB
     Dosage: 375 MG/M2 IN MONOTHERAPY EVERY 2 MONTHS
     Route: 041
     Dates: start: 20210527
  5. CYCLOPHOSPHAMIDE\DOXORUBICIN\PREDNISONE\VINCRISTINE [Suspect]
     Active Substance: CYCLOPHOSPHAMIDE\DOXORUBICIN\PREDNISONE\VINCRISTINE
     Indication: Follicular lymphoma stage IV
     Dosage: 6 CYCLES OF CHEMOIMMUNOTHERAPY R-CHOP SCHEDULE UNTIL JULY 2020
     Route: 065
  6. ELASOMERAN [Concomitant]
     Active Substance: ELASOMERAN
     Indication: Immunisation
     Dosage: UNK
     Dates: start: 20210930

REACTIONS (2)
  - Breakthrough COVID-19 [Recovered/Resolved]
  - Immunodeficiency [Unknown]

NARRATIVE: CASE EVENT DATE: 20210802
